FAERS Safety Report 18470551 (Version 1)
Quarter: 2020Q4

REPORT INFORMATION
  Report Type: Report from Study
  Country: None (occurrence: US)
  Receive Date: 20201105
  Receipt Date: 20201105
  Transmission Date: 20210114
  Serious: Yes (Hospitalization)
  Sender: FDA-Public Use
  Company Number: US-ABBVIE-20P-163-3595022-00

PATIENT
  Age: 64 Year
  Sex: Male
  Weight: 62.1 kg

DRUGS (5)
  1. AZACITIDINE. [Suspect]
     Active Substance: AZACITIDINE
     Indication: MYELODYSPLASTIC SYNDROME
     Dosage: DAYS 1 - 7 OF EACH 28 DAY CYCLE
     Route: 058
     Dates: start: 20200804
  2. ZOVIRAX [Concomitant]
     Active Substance: ACYCLOVIR
     Indication: INFECTION PROPHYLAXIS
     Route: 048
     Dates: start: 20200818
  3. LEVAQUIN [Concomitant]
     Active Substance: LEVOFLOXACIN
     Indication: INFECTION PROPHYLAXIS
     Route: 048
     Dates: start: 20200818
  4. TYLENOL [Concomitant]
     Active Substance: ACETAMINOPHEN
     Indication: PYREXIA
     Route: 048
     Dates: start: 20200818
  5. VENETOCLAX. [Suspect]
     Active Substance: VENETOCLAX
     Indication: MYELODYSPLASTIC SYNDROME
     Dosage: DAYS 1 - 14 OF EACH 28 DAY CYCLE
     Route: 048
     Dates: start: 20200804

REACTIONS (1)
  - Sinusitis fungal [Recovered/Resolved]

NARRATIVE: CASE EVENT DATE: 20201001
